FAERS Safety Report 7910907-6 (Version None)
Quarter: 2011Q4

REPORT INFORMATION
  Report Type: 
  Country: None (occurrence: None)
  Receive Date: 20111114
  Receipt Date: 20111104
  Transmission Date: 20120403
  Serious: No
  Sender: FDA-Public Use
  Company Number: US-BIOGENIDEC-2011BI040596

PATIENT
  Age: 50 Year
  Sex: Male

DRUGS (2)
  1. TYSABRI [Suspect]
     Indication: MULTIPLE SCLEROSIS
     Route: 042
     Dates: start: 20091204, end: 20091204
  2. TYSABRI [Suspect]
     Route: 042
     Dates: start: 20100524

REACTIONS (2)
  - CENTRAL NERVOUS SYSTEM LESION [None]
  - URTICARIA [None]
